FAERS Safety Report 11860847 (Version 1)
Quarter: 2015Q4

REPORT INFORMATION
  Report Type: Spontaneous
  Country: BR (occurrence: BR)
  Receive Date: 20151222
  Receipt Date: 20151222
  Transmission Date: 20160305
  Serious: Yes (Other)
  Sender: FDA-Public Use
  Company Number: BR-SA-2015SA212672

PATIENT
  Sex: Male
  Weight: 88 kg

DRUGS (10)
  1. ARAVA [Suspect]
     Active Substance: LEFLUNOMIDE
     Indication: RHEUMATOID ARTHRITIS
     Route: 065
  2. ARAVA [Suspect]
     Active Substance: LEFLUNOMIDE
     Indication: RHEUMATOID ARTHRITIS
     Route: 065
     Dates: end: 20101022
  3. RITUXIMAB [Concomitant]
     Active Substance: RITUXIMAB
     Dosage: 1ST AND 15TH DAY EVERY SIX MONTHS
     Dates: start: 20131030, end: 20150615
  4. PREDNISONE. [Concomitant]
     Active Substance: PREDNISONE
     Dates: start: 19920910
  5. INFLIXIMAB [Concomitant]
     Active Substance: INFLIXIMAB
     Dosage: 3MG/KGP
     Dates: start: 20081020, end: 20090910
  6. ARAVA [Suspect]
     Active Substance: LEFLUNOMIDE
     Indication: RHEUMATOID ARTHRITIS
     Route: 065
     Dates: end: 20150615
  7. HYDROXYCHLOROQUINE [Concomitant]
     Active Substance: HYDROXYCHLOROQUINE
     Dates: start: 19920910
  8. ETANERCEPT [Concomitant]
     Active Substance: ETANERCEPT
     Dates: start: 20100816, end: 20101022
  9. ARAVA [Suspect]
     Active Substance: LEFLUNOMIDE
     Indication: RHEUMATOID ARTHRITIS
     Route: 065
     Dates: start: 1992, end: 20090910
  10. METHOTREXATE [Concomitant]
     Active Substance: METHOTREXATE
     Dates: start: 19920910

REACTIONS (14)
  - Hip arthroplasty [Unknown]
  - Arthrodesis [Unknown]
  - Red blood cell sedimentation rate increased [Unknown]
  - Urinary tract infection [Unknown]
  - Hip arthroplasty [Unknown]
  - Arthrodesis [Unknown]
  - Leg amputation [Unknown]
  - Arthropathy [Unknown]
  - Postoperative wound infection [Unknown]
  - Septic arthritis staphylococcal [Unknown]
  - Osteomyelitis chronic [Unknown]
  - Internal fixation of spine [Unknown]
  - Bone erosion [Unknown]
  - Drug ineffective [Unknown]

NARRATIVE: CASE EVENT DATE: 2004
